FAERS Safety Report 26040240 (Version 1)
Quarter: 2025Q4

REPORT INFORMATION
  Report Type: Spontaneous
  Country: EU (occurrence: EU)
  Receive Date: 20251113
  Receipt Date: 20251113
  Transmission Date: 20260118
  Serious: Yes (Hospitalization, Other)
  Sender: RANBAXY
  Company Number: EU-SEMPA-2025-005279

PATIENT
  Age: 17 Year
  Sex: Female
  Weight: 52 kg

DRUGS (2)
  1. SERTRALINE [Suspect]
     Active Substance: SERTRALINE HYDROCHLORIDE
     Indication: Depression
     Dosage: 1 ST 100 MG + 1 ST 50 MG
     Route: 065
  2. SERTRALINE [Suspect]
     Active Substance: SERTRALINE HYDROCHLORIDE
     Indication: Anxiety
     Dosage: 1 ST 100 MG + 1 ST 50 MG
     Route: 065

REACTIONS (2)
  - Myositis [Recovering/Resolving]
  - Multiple acyl-coenzyme A dehydrogenase deficiency [Recovering/Resolving]

NARRATIVE: CASE EVENT DATE: 20250704
